FAERS Safety Report 8595770 (Version 3)
Quarter: 2014Q1

REPORT INFORMATION
  Report Type: Spontaneous
  Country: US (occurrence: US)
  Receive Date: 20120605
  Receipt Date: 20140107
  Transmission Date: 20141002
  Serious: Yes (Hospitalization)
  Sender: FDA-Public Use
  Company Number: US-ASTRAZENECA-2012SE34730

PATIENT
  Age: 38 Year
  Sex: Female
  Weight: 89.4 kg

DRUGS (13)
  1. NEXIUM [Suspect]
     Indication: DYSPEPSIA
     Dosage: 2 TIMES A DAY
     Route: 048
     Dates: start: 2006, end: 2008
  2. NEXIUM [Suspect]
     Indication: GASTROOESOPHAGEAL REFLUX DISEASE
     Dosage: 2 TIMES A DAY
     Route: 048
     Dates: start: 2006, end: 2008
  3. IBUPROFEN [Concomitant]
  4. PANTOPRAZOLE [Concomitant]
     Dates: start: 2006, end: 2008
  5. OMEPRAZOLE [Concomitant]
     Dates: start: 20111228
  6. SIMVASTATIN [Concomitant]
     Dates: start: 20110920
  7. ACIPHEX [Concomitant]
     Dates: start: 20100303
  8. NAPROXEN [Concomitant]
     Dates: start: 20100712
  9. ZEGERID [Concomitant]
     Dosage: 40/1100 MG
     Dates: start: 20090107
  10. CRESTOR [Concomitant]
     Dates: start: 20090929
  11. SINGULAIR [Concomitant]
     Dates: start: 20091223
  12. DIPHENHYDRAMINE [Concomitant]
     Dates: start: 20100303
  13. CYCLOBENZAPRINE [Concomitant]
     Dates: start: 20110117

REACTIONS (6)
  - Gastric disorder [Unknown]
  - Osteoporosis [Unknown]
  - Multiple fractures [Unknown]
  - Bone pain [Unknown]
  - Fall [Unknown]
  - Muscular weakness [Unknown]
